FAERS Safety Report 12247064 (Version 1)
Quarter: 2016Q2

REPORT INFORMATION
  Report Type: Spontaneous
  Country: US (occurrence: US)
  Receive Date: 20160407
  Receipt Date: 20160407
  Transmission Date: 20160815
  Serious: No
  Sender: FDA-Public Use
  Company Number: US-009507513-1603USA007402

PATIENT
  Age: 61 Year
  Sex: Female
  Weight: 136.5 kg

DRUGS (16)
  1. ATORVASTATIN [Concomitant]
     Active Substance: ATORVASTATIN
  2. AMPICILLIN [Concomitant]
     Active Substance: AMPICILLIN
  3. TECFIDERA [Suspect]
     Active Substance: DIMETHYL FUMARATE
     Indication: FLUSHING
     Dosage: 240 MG, DAILY, IN THE AM
     Dates: start: 20160106
  4. ADVAIR HFA [Concomitant]
     Active Substance: FLUTICASONE PROPIONATE\SALMETEROL XINAFOATE
  5. LOSARTAN POTASSIUM TABLETS [Suspect]
     Active Substance: LOSARTAN POTASSIUM
     Indication: PRODUCT USED FOR UNKNOWN INDICATION
     Dosage: UNK
  6. PRAMIPEXOLE. [Concomitant]
     Active Substance: PRAMIPEXOLE
  7. BACLOFEN. [Concomitant]
     Active Substance: BACLOFEN
  8. DEXTROAMPHETAMINE. [Concomitant]
     Active Substance: DEXTROAMPHETAMINE
  9. PREDNISONE. [Concomitant]
     Active Substance: PREDNISONE
  10. MONTELUKAST SODIUM. [Concomitant]
     Active Substance: MONTELUKAST SODIUM
  11. VIIBRYD [Concomitant]
     Active Substance: VILAZODONE HYDROCHLORIDE
  12. METFORMIN [Concomitant]
     Active Substance: METFORMIN HYDROCHLORIDE
  13. AMPYRA [Suspect]
     Active Substance: DALFAMPRIDINE
     Indication: MULTIPLE SCLEROSIS
     Dosage: 10 MG, TWICE A DAY
     Route: 048
  14. LEVOFLOXACIN. [Concomitant]
     Active Substance: LEVOFLOXACIN
  15. LANTUS [Concomitant]
     Active Substance: INSULIN GLARGINE
  16. CHOLECALCIFEROL [Concomitant]
     Active Substance: CHOLECALCIFEROL

REACTIONS (2)
  - Flushing [Unknown]
  - Myalgia [Unknown]

NARRATIVE: CASE EVENT DATE: 201511
